FAERS Safety Report 25867876 (Version 1)
Quarter: 2025Q4

REPORT INFORMATION
  Report Type: Spontaneous
  Country: US (occurrence: US)
  Receive Date: 20251001
  Receipt Date: 20251001
  Transmission Date: 20260117
  Serious: No
  Sender: NOVARTIS
  Company Number: US-002147023-NVSC2025US148347

PATIENT
  Sex: Female

DRUGS (1)
  1. FEMARA [Suspect]
     Active Substance: LETROZOLE
     Indication: Product used for unknown indication
     Dosage: 2.5 MG
     Route: 065

REACTIONS (8)
  - Dizziness [Unknown]
  - Vision blurred [Unknown]
  - Heart rate increased [Unknown]
  - Fatigue [Unknown]
  - Ocular discomfort [Unknown]
  - Fatigue [Unknown]
  - Sleep disorder [Unknown]
  - Head discomfort [Unknown]
